FAERS Safety Report 19169127 (Version 2)
Quarter: 2021Q2

REPORT INFORMATION
  Report Type: Other
  Country: FR (occurrence: FR)
  Receive Date: 20210422
  Receipt Date: 20210427
  Transmission Date: 20210717
  Serious: Yes (Other)
  Sender: FDA-Public Use
  Company Number: FR-ASTELLAS-2021US014809

PATIENT
  Age: 72 Year
  Sex: Male

DRUGS (1)
  1. VESICARE [Suspect]
     Active Substance: SOLIFENACIN SUCCINATE
     Indication: MICTURITION URGENCY
     Route: 048
     Dates: start: 2020, end: 2020

REACTIONS (2)
  - Somnambulism [Recovered/Resolved]
  - Hallucination [Recovered/Resolved]

NARRATIVE: CASE EVENT DATE: 202010
